FAERS Safety Report 20914962 (Version 1)
Quarter: 2022Q2

REPORT INFORMATION
  Report Type: Spontaneous
  Country: US (occurrence: US)
  Receive Date: 20220604
  Receipt Date: 20220604
  Transmission Date: 20220721
  Serious: No
  Sender: FDA-Public Use
  Company Number: US-SA-SAC20220530000349

PATIENT
  Sex: Female

DRUGS (13)
  1. DUPIXENT [Suspect]
     Active Substance: DUPILUMAB
     Indication: Asthma
     Dosage: 300 MG, QOW
     Route: 058
  2. SYMBICORT [Suspect]
     Active Substance: BUDESONIDE\FORMOTEROL FUMARATE DIHYDRATE
  3. AFLURIA NOS [Concomitant]
     Active Substance: INFLUENZA VIRUS VACCINE TRIVALENT TYPE A+B AFLURIA
  4. PROAIR HFA [Concomitant]
     Active Substance: ALBUTEROL SULFATE
     Indication: Asthma
  5. BUPROPION [Concomitant]
     Active Substance: BUPROPION
     Dosage: 300MG
  6. DULOXETINE HYDROCHLORIDE [Concomitant]
     Active Substance: DULOXETINE HYDROCHLORIDE
     Dosage: 300MG
  7. CALCIUM [Concomitant]
     Active Substance: CALCIUM
     Dosage: 10MG
  8. VITAMIN D NOS [Concomitant]
     Active Substance: VITAMIN D NOS
     Dosage: 600MG
  9. PRAVASTATIN SODIUM [Concomitant]
     Active Substance: PRAVASTATIN SODIUM
  10. LEVOTHYROXINE [Concomitant]
     Active Substance: LEVOTHYROXINE
     Dosage: 10MG
  11. OMEPRAZOLE [Concomitant]
     Active Substance: OMEPRAZOLE
  12. GABAPENTIN [Concomitant]
     Active Substance: GABAPENTIN
  13. BENZTROPINE MESYLATE [Concomitant]
     Active Substance: BENZTROPINE MESYLATE

REACTIONS (3)
  - Muscle strain [Unknown]
  - Ill-defined disorder [Unknown]
  - Product use issue [Unknown]
